FAERS Safety Report 10162259 (Version 2)
Quarter: 2014Q2

REPORT INFORMATION
  Report Type: Spontaneous
  Country: GB (occurrence: GB)
  Receive Date: 20140509
  Receipt Date: 20140509
  Transmission Date: 20141212
  Serious: Yes (Other)
  Sender: FDA-Public Use
  Company Number: GB-JNJFOC-20140406290

PATIENT
  Age: 83 Year
  Sex: Female

DRUGS (20)
  1. XARELTO [Suspect]
     Indication: EMBOLISM VENOUS
     Route: 048
     Dates: start: 201308, end: 20140315
  2. XARELTO [Suspect]
     Indication: CEREBROVASCULAR ACCIDENT PROPHYLAXIS
     Route: 048
     Dates: start: 201308, end: 20140315
  3. XARELTO [Suspect]
     Indication: DEEP VEIN THROMBOSIS
     Route: 048
     Dates: start: 201308, end: 20140315
  4. XARELTO [Suspect]
     Indication: ATRIAL FIBRILLATION
     Route: 048
     Dates: start: 201308, end: 20140315
  5. CLOPIDOGREL [Suspect]
     Indication: MYOCARDIAL INFARCTION
     Route: 048
     Dates: start: 201308
  6. DICLOFENAC [Concomitant]
     Route: 065
  7. FOLIC ACID [Concomitant]
     Route: 065
  8. PARACETAMOL [Concomitant]
     Route: 065
  9. GTN [Concomitant]
     Route: 065
  10. ISOSORBIDE [Concomitant]
     Route: 065
  11. LANSOPRAZOLE [Concomitant]
     Route: 065
  12. LEVOTHYROXINE SODIUM [Concomitant]
     Route: 065
  13. NICORANDIL [Concomitant]
     Route: 065
  14. SALAZOPYRIN [Concomitant]
     Route: 065
  15. FERROUS FUMARATE [Concomitant]
     Route: 065
  16. EUMOVATE [Concomitant]
     Route: 065
  17. CO-TRIMOXAZOLE [Concomitant]
     Route: 065
  18. BISOPROLOL [Concomitant]
     Route: 065
  19. TRAMADOL [Concomitant]
     Route: 065
  20. ATORVASTATIN [Concomitant]
     Route: 065

REACTIONS (3)
  - Hepatic function abnormal [Recovering/Resolving]
  - Liver function test abnormal [Recovering/Resolving]
  - Anaemia [Unknown]
